FAERS Safety Report 8895206 (Version 1)
Quarter: 2012Q4

REPORT INFORMATION
  Report Type: 
  Country: US (occurrence: US)
  Receive Date: 20121107
  Receipt Date: 20121107
  Transmission Date: 20130627
  Serious: No
  Sender: FDA-Public Use
  Company Number: US-AMGEN-USASP2011062067

PATIENT
  Age: 67 Year
  Sex: Male

DRUGS (4)
  1. ENBREL [Suspect]
     Indication: RHEUMATOID ARTHRITIS
     Dosage: 50 mg, qwk
     Dates: start: 20110325, end: 20110902
  2. SULFASALAZINE [Concomitant]
     Dosage: UNK
     Dates: start: 20110501
  3. PLAQUENIL [Concomitant]
     Dosage: UNK
     Dates: start: 20110501
  4. METHOTREXATE [Concomitant]
     Dates: start: 20110701

REACTIONS (2)
  - Abdominal discomfort [Unknown]
  - Therapeutic product ineffective [Not Recovered/Not Resolved]
